FAERS Safety Report 5741107-6 (Version None)
Quarter: 2008Q2

REPORT INFORMATION
  Report Type: 
  Country: None (occurrence: None)
  Receive Date: 20080516
  Receipt Date: 20080507
  Transmission Date: 20081010
  Serious: Yes (Other)
  Sender: FDA-Public Use
  Company Number: US-PFIZER INC-2008040057

PATIENT
  Age: 55 Year
  Sex: Female
  Weight: 68.181 kg

DRUGS (10)
  1. CHANTIX [Suspect]
     Indication: SMOKING CESSATION THERAPY
  2. LAMICTAL [Concomitant]
  3. CELEXA [Concomitant]
  4. DHEA [Concomitant]
  5. VITAMIN CAP [Concomitant]
  6. CALCIUM WITH VITAMIN D [Concomitant]
  7. ZINC [Concomitant]
  8. FISH OIL [Concomitant]
  9. ASCORBIC ACID [Concomitant]
  10. VITAMIN B COMPLEX CAP [Concomitant]

REACTIONS (1)
  - DEPRESSION [None]
